FAERS Safety Report 6328070-4 (Version None)
Quarter: 2009Q3

REPORT INFORMATION
  Report Type: 
  Country: None (occurrence: None)
  Receive Date: 20090825
  Receipt Date: 20081103
  Transmission Date: 20100115
  Serious: No
  Sender: FDA-Public Use
  Company Number: US-ABBOTT-08P-163-0485292-00

PATIENT
  Sex: Female

DRUGS (5)
  1. SYNTHROID [Suspect]
     Indication: AUTOIMMUNE THYROIDITIS
     Dosage: 100MG X 1/2 TABLETS
     Route: 048
     Dates: start: 20040801
  2. SYNTHROID [Suspect]
     Route: 048
     Dates: start: 20040101, end: 20040101
  3. SYNTHROID [Suspect]
     Route: 048
     Dates: start: 20041001, end: 20080918
  4. SYNTHROID [Suspect]
     Route: 048
     Dates: start: 20080919
  5. IBANDRONATE SODIUM [Concomitant]
     Indication: DRUG USE FOR UNKNOWN INDICATION

REACTIONS (3)
  - ALOPECIA [None]
  - FATIGUE [None]
  - SKIN EXFOLIATION [None]
